FAERS Safety Report 12655086 (Version 1)
Quarter: 2016Q3

REPORT INFORMATION
  Report Type: Spontaneous
  Country: US (occurrence: US)
  Receive Date: 20160816
  Receipt Date: 20160816
  Transmission Date: 20161109
  Serious: No
  Sender: FDA-Public Use
  Company Number: US-BEH-2016072273

PATIENT
  Sex: Female
  Weight: 26.3 kg

DRUGS (9)
  1. HIZENTRA [Suspect]
     Active Substance: HUMAN IMMUNOGLOBULIN G
     Dosage: UNK
     Route: 058
  2. DIPHENHYDRAMINE. [Concomitant]
     Active Substance: DIPHENHYDRAMINE
  3. MULTIVITAMIN                       /00097801/ [Concomitant]
     Active Substance: VITAMINS
  4. PULMICORT TURBUHALER [Concomitant]
     Active Substance: BUDESONIDE
  5. HIZENTRA [Suspect]
     Active Substance: HUMAN IMMUNOGLOBULIN G
     Indication: IMMUNODEFICIENCY
     Dosage: 3 G, QW
     Route: 058
     Dates: start: 20140908
  6. HIZENTRA [Suspect]
     Active Substance: HUMAN IMMUNOGLOBULIN G
     Dosage: UNK
     Route: 058
  7. LMX                                /00033401/ [Concomitant]
  8. EPIPEN [Concomitant]
     Active Substance: EPINEPHRINE
  9. XOPENEX [Concomitant]
     Active Substance: LEVALBUTEROL HYDROCHLORIDE

REACTIONS (1)
  - Nasopharyngitis [Unknown]
